FAERS Safety Report 18111626 (Version 1)
Quarter: 2020Q3

REPORT INFORMATION
  Report Type: Spontaneous
  Country: US (occurrence: US)
  Receive Date: 20200805
  Receipt Date: 20200805
  Transmission Date: 20201103
  Serious: Yes (Hospitalization, Other)
  Sender: FDA-Public Use
  Company Number: US-GW PHARMA-202007USGW02673

PATIENT

DRUGS (1)
  1. EPIDIOLEX [Suspect]
     Active Substance: CANNABIDIOL
     Indication: PRODUCT USED FOR UNKNOWN INDICATION
     Dosage: 350 MILLIGRAM, BID
     Route: 048
     Dates: start: 201907

REACTIONS (3)
  - Hospitalisation [Recovered/Resolved]
  - Shock [Recovering/Resolving]
  - Hypersensitivity [Recovering/Resolving]
